FAERS Safety Report 5493224-6 (Version None)
Quarter: 2007Q4

REPORT INFORMATION
  Report Type: 
  Country: None (occurrence: None)
  Receive Date: 20071023
  Receipt Date: 20071019
  Transmission Date: 20080405
  Serious: Yes (Life-Threatening, Hospitalization)
  Sender: FDA-Public Use
  Company Number: B0492156A

PATIENT
  Age: 75 Year
  Sex: Male

DRUGS (6)
  1. CARVEDILOL [Suspect]
     Indication: HYPERTENSION
     Dosage: 20MG PER DAY
     Route: 048
     Dates: start: 20070615, end: 20070925
  2. HANP [Suspect]
     Indication: OLIGURIA
     Route: 042
     Dates: start: 20070925, end: 20070925
  3. PRONON [Concomitant]
  4. ADALAT [Concomitant]
  5. LASIX [Concomitant]
  6. DOXAZOSIN MESYLATE [Concomitant]

REACTIONS (5)
  - BLOOD PRESSURE SYSTOLIC INCREASED [None]
  - CARDIAC ARREST [None]
  - COMA [None]
  - HEART RATE DECREASED [None]
  - SHOCK [None]
